FAERS Safety Report 9196228 (Version 1)
Quarter: 2013Q1

REPORT INFORMATION
  Report Type: Report from Study
  Country: CA (occurrence: CA)
  Receive Date: 20130328
  Receipt Date: 20130328
  Transmission Date: 20140127
  Serious: Yes (Other)
  Sender: FDA-Public Use
  Company Number: CA-JNJFOC-20130312908

PATIENT
  Sex: Female
  Weight: 96.3 kg

DRUGS (6)
  1. REMICADE [Suspect]
     Indication: CROHN^S DISEASE
     Route: 042
  2. BUSCOPAN [Concomitant]
     Route: 065
  3. IMURAN [Concomitant]
     Route: 065
  4. ZOLOFT [Concomitant]
     Route: 065
  5. ALIGN NOS [Concomitant]
     Route: 065
  6. PANTOLOC [Concomitant]
     Route: 065

REACTIONS (1)
  - Coeliac disease [Unknown]
